FAERS Safety Report 4899449-2 (Version None)
Quarter: 2006Q1

REPORT INFORMATION
  Report Type: 
  Country: None (occurrence: None)
  Receive Date: 20060131
  Receipt Date: 20060117
  Transmission Date: 20060701
  Serious: Yes (Hospitalization)
  Sender: FDA-Public Use
  Company Number: DSA_27606_2006

PATIENT
  Age: 23 Year
  Sex: Female

DRUGS (3)
  1. LORAZEPAM [Suspect]
     Dosage: 1 TAB ONCE PO
     Route: 048
     Dates: start: 20060101, end: 20060101
  2. FLUCTIM [Suspect]
     Dosage: 100 MG ONCE PO
     Route: 048
     Dates: start: 20060101, end: 20060101
  3. TAFIL [Suspect]
     Dosage: 1 TAB ONCE PO
     Route: 048
     Dates: start: 20060101, end: 20060101

REACTIONS (5)
  - HEADACHE [None]
  - HYPOTENSION [None]
  - INTENTIONAL OVERDOSE [None]
  - MELAENA [None]
  - SUICIDE ATTEMPT [None]
